FAERS Safety Report 19972562 (Version 2)
Quarter: 2022Q1

REPORT INFORMATION
  Report Type: Report from Study
  Country: US (occurrence: US)
  Receive Date: 20211020
  Receipt Date: 20220107
  Transmission Date: 20220423
  Serious: Yes (Other)
  Sender: FDA-Public Use
  Company Number: US-ABBVIE-21K-163-4061722-00

PATIENT
  Sex: Female
  Weight: 121.67 kg

DRUGS (13)
  1. HUMIRA [Suspect]
     Active Substance: ADALIMUMAB
     Indication: Rheumatoid arthritis
     Route: 058
     Dates: start: 2016
  2. HUMIRA [Suspect]
     Active Substance: ADALIMUMAB
     Indication: Autoimmune disorder
     Route: 058
     Dates: start: 20170811, end: 202106
  3. HUMIRA [Suspect]
     Active Substance: ADALIMUMAB
     Indication: Inflammatory bowel disease
     Route: 058
     Dates: start: 20190511
  4. IBUPROFEN [Concomitant]
     Active Substance: IBUPROFEN
     Indication: Product used for unknown indication
  5. ARNUITY ELLIPTA [Concomitant]
     Active Substance: FLUTICASONE FUROATE
     Indication: Asthma
     Dosage: INHALATION
     Route: 055
     Dates: start: 20210604
  6. TOPIRAMATE [Concomitant]
     Active Substance: TOPIRAMATE
     Indication: Seizure
     Route: 048
     Dates: start: 20200427
  7. TEGRETOL [Concomitant]
     Active Substance: CARBAMAZEPINE
     Indication: Product used for unknown indication
  8. NEURONTIN [Concomitant]
     Active Substance: GABAPENTIN
     Indication: Seizure
     Route: 048
     Dates: start: 20160408
  9. HEADACHE RELIEF [Concomitant]
     Active Substance: ACETAMINOPHEN\ASPIRIN\CAFFEINE
     Indication: Product used for unknown indication
  10. COVID-19 VACCINE [Concomitant]
     Indication: COVID-19 immunisation
     Dosage: 1ST DOSE
     Route: 030
     Dates: start: 202106, end: 202106
  11. COVID-19 VACCINE [Concomitant]
     Dosage: 2ND DOSE
     Route: 030
     Dates: start: 202107, end: 202107
  12. CARBAMAZEPINE [Concomitant]
     Active Substance: CARBAMAZEPINE
     Indication: Seizure
     Route: 048
     Dates: start: 20200427
  13. RIZATRIPTAN [Concomitant]
     Active Substance: RIZATRIPTAN
     Indication: Headache
     Route: 048

REACTIONS (22)
  - Polyp [Recovered/Resolved]
  - Haematochezia [Recovered/Resolved]
  - Bronchitis [Recovered/Resolved]
  - Bronchitis [Recovered/Resolved with Sequelae]
  - Diarrhoea [Recovered/Resolved]
  - Periorbital swelling [Unknown]
  - Feeling abnormal [Unknown]
  - Fatigue [Not Recovered/Not Resolved]
  - Off label use [Not Recovered/Not Resolved]
  - Joint swelling [Recovering/Resolving]
  - Joint lock [Recovered/Resolved]
  - Grip strength decreased [Recovered/Resolved]
  - Exostosis [Recovering/Resolving]
  - Swelling face [Unknown]
  - Pyrexia [Recovering/Resolving]
  - Arthralgia [Recovering/Resolving]
  - Pain [Unknown]
  - Pharyngitis streptococcal [Recovered/Resolved]
  - Device issue [Recovered/Resolved]
  - Device issue [Recovered/Resolved]
  - Diarrhoea [Recovered/Resolved with Sequelae]
  - Haematochezia [Recovered/Resolved with Sequelae]

NARRATIVE: CASE EVENT DATE: 20160101
